FAERS Safety Report 14317592 (Version 2)
Quarter: 2019Q2

REPORT INFORMATION
  Report Type: Report from Study
  Country: US (occurrence: US)
  Receive Date: 20171222
  Receipt Date: 20190402
  Transmission Date: 20190711
  Serious: Yes (Other)
  Sender: FDA-Public Use
  Company Number: US-CIPLA LTD.-2017US24707

PATIENT

DRUGS (8)
  1. LEUCOVORINE [Suspect]
     Active Substance: LEUCOVORIN
     Indication: COLORECTAL CANCER
     Dosage: UNK
     Route: 065
  2. APREPITANT. [Concomitant]
     Active Substance: APREPITANT
     Dosage: 80 MILLIGRAM, QD (EACH MORNING), ON DAY 2 AND 3
     Route: 048
  3. PALONOSETRON. [Concomitant]
     Active Substance: PALONOSETRON HYDROCHLORIDE
     Indication: PROPHYLAXIS OF NAUSEA AND VOMITING
     Dosage: 0.25 MILLIGRAM, OVER 30S ON DAY 1
     Route: 040
  4. DEXAMETHASONE. [Concomitant]
     Active Substance: DEXAMETHASONE
     Dosage: 8 MILLIGRAM, QD (EACH MORNING) ON DAYS 2 THROUGH 4
     Route: 048
  5. OXALIPLATIN. [Suspect]
     Active Substance: OXALIPLATIN
     Indication: COLORECTAL CANCER
     Dosage: UNK
     Route: 065
  6. APREPITANT. [Concomitant]
     Active Substance: APREPITANT
     Indication: PROPHYLAXIS OF NAUSEA AND VOMITING
     Dosage: 125 MILLIGRAM, ON DAY 1, 60 MIN PRIOR TO INITIATION OF CHEMOTHERAPY
     Route: 048
  7. DEXAMETHASONE. [Concomitant]
     Active Substance: DEXAMETHASONE
     Indication: PROPHYLAXIS OF NAUSEA AND VOMITING
     Dosage: 12 MILLIGRAM, ON DAY 1
     Route: 048
  8. FLUOROURACIL. [Suspect]
     Active Substance: FLUOROURACIL
     Indication: COLORECTAL CANCER
     Dosage: UNK
     Route: 065

REACTIONS (39)
  - Transient ischaemic attack [Unknown]
  - Mental status changes [Unknown]
  - Fall [Unknown]
  - Blood creatinine increased [Unknown]
  - Rectal haemorrhage [Unknown]
  - Ear pain [Unknown]
  - Bone pain [Unknown]
  - Diverticulitis [Unknown]
  - Aortic dilatation [Unknown]
  - Urinary retention [Unknown]
  - Gingival bleeding [Unknown]
  - Oral candidiasis [Unknown]
  - Hypomagnesaemia [Unknown]
  - Myalgia [Unknown]
  - Pruritus [Unknown]
  - Menstruation irregular [Unknown]
  - Pulmonary embolism [Unknown]
  - Flatulence [Unknown]
  - Hypernatraemia [Unknown]
  - Peritonitis [Unknown]
  - Syncope [Unknown]
  - Limb discomfort [Unknown]
  - Facial pain [Unknown]
  - Muscle spasms [Unknown]
  - Haemorrhoids [Unknown]
  - Hyposmia [Unknown]
  - Arthralgia [Unknown]
  - Weight increased [Unknown]
  - Blood urea increased [Unknown]
  - Compression fracture [Unknown]
  - Gastric perforation [Unknown]
  - Dry eye [Unknown]
  - Ecchymosis [Unknown]
  - Neck pain [Unknown]
  - Asthenia [Unknown]
  - Chest discomfort [Unknown]
  - Lacrimation increased [Unknown]
  - Dehydration [Unknown]
  - Proteinuria [Unknown]
